FAERS Safety Report 5976237-7 (Version None)
Quarter: 2008Q4

REPORT INFORMATION
  Report Type: 
  Country: None (occurrence: None)
  Receive Date: 20081202
  Receipt Date: 20081119
  Transmission Date: 20090506
  Serious: Yes (Other)
  Sender: FDA-Public Use
  Company Number: LY-GILEAD-2008-0019169

PATIENT
  Age: 12 Year
  Sex: Male

DRUGS (2)
  1. EMTRICITABINE/TENOFOVIR DISOPROXIL FUMARATE [Suspect]
     Indication: HIV INFECTION
     Dates: start: 20070201
  2. LOPINAVIR AND RITONAVIR [Concomitant]
     Indication: HIV INFECTION
     Dates: start: 20070201

REACTIONS (5)
  - BLOOD ALKALINE PHOSPHATASE INCREASED [None]
  - FANCONI SYNDROME ACQUIRED [None]
  - OSTEOPENIA [None]
  - PARAESTHESIA [None]
  - RICKETS [None]
